FAERS Safety Report 13406312 (Version 1)
Quarter: 2017Q2

REPORT INFORMATION
  Report Type: Report from Study
  Country: None (occurrence: TR)
  Receive Date: 20170405
  Receipt Date: 20170405
  Transmission Date: 20170830
  Serious: Yes (Hospitalization)
  Sender: FDA-Public Use
  Company Number: TR-ABBVIE-17P-161-1931138-00

PATIENT
  Age: 59 Year
  Sex: Female
  Weight: 72 kg

DRUGS (5)
  1. LERCADIP [Concomitant]
     Active Substance: LERCANIDIPINE HYDROCHLORIDE
     Indication: HYPERTENSION
     Route: 048
     Dates: start: 2010
  2. DUODOPA [Suspect]
     Active Substance: CARBIDOPA\LEVODOPA
     Dosage: MORNING DOSE: 0.00 ML??CONTINUOUS DOSE. 2.50 ML??EXTRA DOSE: 2.00 ML
     Route: 050
     Dates: start: 20170331
  3. SINEMET [Concomitant]
     Active Substance: CARBIDOPA\LEVODOPA
     Indication: PARKINSON^S DISEASE
     Route: 048
     Dates: start: 2012
  4. DUODOPA [Suspect]
     Active Substance: CARBIDOPA\LEVODOPA
     Indication: PARKINSON^S DISEASE
     Dosage: MORNING DOSE: 0.00 ML??CONTINUOUS DOSE. 3.00 ML??EXTRA DOSE: 2.00 ML
     Route: 050
     Dates: start: 20151209, end: 20170331
  5. PK-MERZ [Concomitant]
     Active Substance: AMANTADINE
     Indication: PARKINSON^S DISEASE
     Route: 048
     Dates: start: 2015

REACTIONS (2)
  - Drug dose omission [Recovered/Resolved]
  - Dyskinesia [Unknown]

NARRATIVE: CASE EVENT DATE: 20170328
